FAERS Safety Report 4602235-1 (Version None)
Quarter: 2005Q2

REPORT INFORMATION
  Report Type: 
  Country: None (occurrence: None)
  Receive Date: 20050215
  Receipt Date: 20041029
  Transmission Date: 20051028
  Serious: Yes (Other)
  Sender: FDA-Public Use
  Company Number: 382347

PATIENT
  Age: 52 Year
  Sex: Female
  Weight: 48.1 kg

DRUGS (16)
  1. PEGASYS [Suspect]
     Indication: HEPATITIS C VIRUS
     Dosage: 180 MCG  1 PER WEEK  SUBCUTANEOUS
     Route: 058
     Dates: start: 20031123, end: 20040526
  2. COPEGUS [Suspect]
     Indication: HEPATITIS C VIRUS
     Dosage: 1000 MG DAILY  ORAL
     Route: 048
     Dates: start: 20031123, end: 20040526
  3. ATENOLOL [Concomitant]
  4. VALIUM [Concomitant]
  5. LEXAPRO [Concomitant]
  6. ROBAXIN [Concomitant]
  7. BENADRYL [Concomitant]
  8. GOODY'S (*ACETAMINOPHEN/ ASPIRIN/ *CAFFEINE) [Concomitant]
  9. AFRIN NASAL SPRAY (OXYMETAZOLINE HYDROCHLORIDE) [Concomitant]
  10. PREMARIN [Concomitant]
  11. DIAZEPAN (DIAZAPAM) [Concomitant]
  12. ASTELIN [Concomitant]
  13. COMBIVENT [Concomitant]
  14. ZOLOFT [Concomitant]
  15. ZANAFLEX [Concomitant]
  16. LEVOTHYROXINE SODIUM [Concomitant]

REACTIONS (34)
  - ADVERSE EVENT [None]
  - AGEUSIA [None]
  - ALOPECIA [None]
  - ANAEMIA [None]
  - ASTHENIA [None]
  - CHEST DISCOMFORT [None]
  - CHEST PAIN [None]
  - CHILLS [None]
  - CONSTIPATION [None]
  - COUGH [None]
  - CYANOSIS [None]
  - DIZZINESS [None]
  - DYSPNOEA EXERTIONAL [None]
  - EPISTAXIS [None]
  - FATIGUE [None]
  - HEADACHE [None]
  - HEPATITIS C RNA POSITIVE [None]
  - HYPERSOMNIA [None]
  - HYPOTHYROIDISM [None]
  - MYALGIA [None]
  - NAUSEA [None]
  - OESOPHAGEAL PAIN [None]
  - ORAL DISCOMFORT [None]
  - PALPITATIONS [None]
  - PLATELET COUNT DECREASED [None]
  - PRURITUS [None]
  - PSORIASIS [None]
  - PYREXIA [None]
  - RECTAL HAEMORRHAGE [None]
  - SENSITIVITY OF TEETH [None]
  - VIRAL LOAD INCREASED [None]
  - VISION BLURRED [None]
  - VOMITING [None]
  - WEIGHT DECREASED [None]
